FAERS Safety Report 6699221-7 (Version None)
Quarter: 2010Q2

REPORT INFORMATION
  Report Type: 
  Country: None (occurrence: None)
  Receive Date: 20100427
  Receipt Date: 20100416
  Transmission Date: 20101027
  Serious: Yes (Other)
  Sender: FDA-Public Use
  Company Number: GB-TEVA-231816ISR

PATIENT
  Age: 88 Year
  Sex: Male
  Weight: 65 kg

DRUGS (6)
  1. BRIMONIDINE [Suspect]
     Indication: GLAUCOMA
     Route: 047
     Dates: start: 20051019
  2. DORZOLAMIDE [Suspect]
     Indication: GLAUCOMA
     Route: 047
     Dates: start: 20041101
  3. ACETYLSALICYLIC ACID [Suspect]
     Indication: ATRIAL FIBRILLATION
     Route: 048
     Dates: start: 20011116
  4. FOLIC ACID [Suspect]
     Indication: ANAEMIA
     Route: 048
     Dates: start: 20040604
  5. GANFORT (BIMATOPROST, TIMOLOL) [Suspect]
     Indication: GLAUCOMA
     Route: 047
     Dates: start: 20080919
  6. MOVICOL [Suspect]
     Indication: CONSTIPATION
     Route: 048
     Dates: start: 20051013

REACTIONS (1)
  - NEPHROPATHY TOXIC [None]
